FAERS Safety Report 20332175 (Version 2)
Quarter: 2022Q1

REPORT INFORMATION
  Report Type: Report from Study
  Country: US (occurrence: US)
  Receive Date: 20220113
  Receipt Date: 20220214
  Transmission Date: 20220424
  Serious: Yes (Other)
  Sender: FDA-Public Use
  Company Number: US-JNJFOC-20211156945

PATIENT
  Age: 48 Year
  Sex: Female

DRUGS (2)
  1. SIMPONI [Suspect]
     Active Substance: GOLIMUMAB
     Indication: Psoriatic arthropathy
     Route: 058
     Dates: start: 20210828
  2. SIMPONI [Suspect]
     Active Substance: GOLIMUMAB
     Route: 058
     Dates: start: 202108

REACTIONS (5)
  - Psoriatic arthropathy [Recovering/Resolving]
  - Haemorrhage [Unknown]
  - Cyst [Unknown]
  - Inappropriate schedule of product administration [Unknown]
  - Foot deformity [Unknown]

NARRATIVE: CASE EVENT DATE: 20210101
